FAERS Safety Report 22121404 (Version 2)
Quarter: 2023Q2

REPORT INFORMATION
  Report Type: Spontaneous
  Country: US (occurrence: US)
  Receive Date: 20230321
  Receipt Date: 20230403
  Transmission Date: 20230722
  Serious: Yes (Other)
  Sender: FDA-Public Use
  Company Number: US-INTRA-CELLULAR THERAPIES, INC.-2023ICT00381

PATIENT
  Sex: Male
  Weight: 65.76 kg

DRUGS (7)
  1. CAPLYTA [Suspect]
     Active Substance: LUMATEPERONE
     Indication: Bipolar II disorder
     Dosage: 42 MG, 1X/DAY EVERY NIGHT
     Route: 048
     Dates: start: 2022, end: 202302
  2. CAPLYTA [Suspect]
     Active Substance: LUMATEPERONE
     Indication: Psychotic disorder
     Dosage: 42 MG, 1X/DAY EVERY NIGHT
     Route: 048
     Dates: start: 202302, end: 2023
  3. CAPLYTA [Suspect]
     Active Substance: LUMATEPERONE
     Dosage: 42 MG, 1X/DAY EVERY NIGHT
     Route: 048
     Dates: start: 2023
  4. CAPLYTA [Suspect]
     Active Substance: LUMATEPERONE
     Dosage: 42 MG, 1X/DAY EVERY NIGHT
     Route: 048
     Dates: start: 202303
  5. LAMOTRIGINE [Concomitant]
     Active Substance: LAMOTRIGINE
  6. AMBIEN [Concomitant]
     Active Substance: ZOLPIDEM TARTRATE
  7. CLONAZEPAM [Concomitant]
     Active Substance: CLONAZEPAM

REACTIONS (17)
  - Hallucination, visual [Recovered/Resolved]
  - Agitation [Recovered/Resolved]
  - Anger [Recovered/Resolved]
  - Negativism [Recovered/Resolved]
  - Heart rate increased [Recovered/Resolved]
  - Caffeine allergy [Recovered/Resolved]
  - Hyperacusis [Recovered/Resolved]
  - Aggression [Recovered/Resolved]
  - Sensory processing sensitivity [Recovered/Resolved]
  - Discomfort [Recovered/Resolved]
  - Fear [Recovered/Resolved]
  - Metamorphopsia [Recovered/Resolved]
  - Musculoskeletal stiffness [Recovered/Resolved]
  - Olfactory dysfunction [Recovered/Resolved]
  - Drug effect less than expected [Recovered/Resolved]
  - Tremor [Recovered/Resolved]
  - Sedation [Recovering/Resolving]

NARRATIVE: CASE EVENT DATE: 20220101
